FAERS Safety Report 13763140 (Version 4)
Quarter: 2017Q4

REPORT INFORMATION
  Report Type: Spontaneous
  Country: JP (occurrence: JP)
  Receive Date: 20170718
  Receipt Date: 20171228
  Transmission Date: 20180320
  Serious: Yes (Other)
  Sender: FDA-Public Use
  Company Number: JP-009507513-1707JPN000256J

PATIENT
  Age: 77 Year
  Sex: Male
  Weight: 76 kg

DRUGS (2)
  1. RINDERON V [Concomitant]
     Active Substance: BETAMETHASONE VALERATE
     Dosage: 2 MG, QD
     Route: 048
     Dates: start: 20170216, end: 20170605
  2. KEYTRUDA [Suspect]
     Active Substance: PEMBROLIZUMAB
     Indication: LUNG ADENOCARCINOMA
     Dosage: 200 MG, Q3W
     Route: 041
     Dates: start: 20170403, end: 20170605

REACTIONS (2)
  - Skin necrosis [Recovering/Resolving]
  - Malignant neoplasm progression [Unknown]

NARRATIVE: CASE EVENT DATE: 20170605
